FAERS Safety Report 8542872-5 (Version None)
Quarter: 2012Q3

REPORT INFORMATION
  Report Type: 
  Country: None (occurrence: None)
  Receive Date: 20120727
  Receipt Date: 20120712
  Transmission Date: 20120928
  Serious: No
  Sender: FDA-Public Use
  Company Number: US-009507513-1207USA003856

PATIENT

DRUGS (3)
  1. LOSARTAN POTASSIUM [Concomitant]
  2. ZOCOR [Suspect]
     Indication: HAEMOGLOBIN INCREASED
     Dosage: 10 MG, QD
     Route: 048
  3. LEVOXYL [Concomitant]

REACTIONS (1)
  - MYALGIA [None]
